FAERS Safety Report 9433027 (Version 2)
Quarter: 2013Q3

REPORT INFORMATION
  Report Type: Report from Study
  Country: US (occurrence: US)
  Receive Date: 20130731
  Receipt Date: 20130923
  Transmission Date: 20140515
  Serious: Yes (Hospitalization)
  Sender: FDA-Public Use
  Company Number: US-CELGENEUS-163-21660-13064420

PATIENT
  Age: 43 Year
  Sex: Male
  Weight: 93.7 kg

DRUGS (14)
  1. ABRAXANE [Suspect]
     Indication: CHOLANGIOCARCINOMA
     Route: 033
     Dates: start: 20130611, end: 20130701
  2. BLOOD TRANSFUSION [Concomitant]
     Indication: PANCYTOPENIA
     Route: 065
  3. ACETAMINOPHEN-OXYCODONE [Concomitant]
     Indication: PAIN
     Dosage: 2 TAB(S)-325MG-5MG
     Route: 048
     Dates: start: 20130525
  4. ACETAMINOPHEN-OXYCODONE [Concomitant]
     Dosage: 325MG-5MG
     Route: 048
     Dates: start: 20130625
  5. DOCUSATE [Concomitant]
     Indication: CONSTIPATION
     Dosage: 200 MILLIGRAM
     Route: 048
     Dates: start: 20130510
  6. DOCUSATE [Concomitant]
     Dosage: 200 MILLIGRAM
     Route: 048
     Dates: start: 20130703
  7. PREVPAC-KIT [Concomitant]
     Indication: PRODUCT USED FOR UNKNOWN INDICATION
     Dosage: 1 PACKET
     Route: 048
     Dates: start: 20130424
  8. MULTIVITAMINE [Concomitant]
     Indication: PRODUCT USED FOR UNKNOWN INDICATION
     Dosage: 1 PACKET
     Route: 048
  9. LEVOFLOXACIN [Concomitant]
     Indication: PSEUDOMONAS INFECTION
     Dosage: 750 MILLIGRAM
     Route: 048
     Dates: start: 20130703
  10. NORCO [Concomitant]
     Indication: PRODUCT USED FOR UNKNOWN INDICATION
     Dosage: 325MG-7.5MG
     Route: 048
     Dates: start: 20130703
  11. GCSF [Concomitant]
     Indication: PRODUCT USED FOR UNKNOWN INDICATION
     Dosage: 480 MICROGRAM
     Route: 058
     Dates: start: 20130703
  12. MEROPENEM [Concomitant]
     Indication: PRODUCT USED FOR UNKNOWN INDICATION
     Route: 065
     Dates: start: 2013
  13. FLAGYL [Concomitant]
     Indication: PRODUCT USED FOR UNKNOWN INDICATION
     Route: 065
     Dates: start: 2013
  14. NEUPOGEN [Concomitant]
     Indication: NEUTROPENIA
     Route: 065

REACTIONS (1)
  - Peritoneal abscess [Recovered/Resolved]
